FAERS Safety Report 11508031 (Version 2)
Quarter: 2015Q4

REPORT INFORMATION
  Report Type: Spontaneous
  Country: BE (occurrence: BE)
  Receive Date: 20150915
  Receipt Date: 20151207
  Transmission Date: 20160304
  Serious: Yes (Death)
  Sender: FDA-Public Use
  Company Number: BE-SA-2015SA139825

PATIENT
  Age: 73 Year
  Sex: Male
  Weight: 62 kg

DRUGS (10)
  1. PREDNISOLONE. [Concomitant]
     Active Substance: PREDNISOLONE
  2. SIMVASTATIN. [Concomitant]
     Active Substance: SIMVASTATIN
  3. INSULIN [Concomitant]
     Active Substance: INSULIN NOS
  4. PANTOMED [Concomitant]
     Active Substance: DEXPANTHENOL
  5. GLUCOPHAGE [Concomitant]
     Active Substance: METFORMIN HYDROCHLORIDE
  6. TAMSULOSIN [Concomitant]
     Active Substance: TAMSULOSIN
  7. TAXOTERE [Suspect]
     Active Substance: DOCETAXEL
     Indication: PROSTATE CANCER
     Dosage: 1 CYCLE 35MG/M2 D1 AND D8
     Route: 042
     Dates: start: 20150430
  8. ASAFLOW [Concomitant]
     Active Substance: ASPIRIN
  9. TAXOTERE [Suspect]
     Active Substance: DOCETAXEL
     Indication: PROSTATE CANCER
     Dosage: DOSE: 3 CYCLES1 CYCLE 35MG/M2 D1 AND D8
     Route: 042
     Dates: start: 20150529, end: 20150807
  10. SPIRONOLACTONE. [Concomitant]
     Active Substance: SPIRONOLACTONE

REACTIONS (1)
  - Interstitial lung disease [Fatal]

NARRATIVE: CASE EVENT DATE: 20150812
